FAERS Safety Report 10688194 (Version 1)
Quarter: 2014Q4

REPORT INFORMATION
  Report Type: Spontaneous
  Country: CN (occurrence: None)
  Receive Date: 20141231
  Receipt Date: 20141231
  Transmission Date: 20150529
  Serious: Yes (Other)
  Sender: FDA-Public Use
  Company Number: 2014AMD00141

PATIENT
  Age: 05 Year
  Sex: Male

DRUGS (4)
  1. CHINESE HERBAL MEDICINE (XIAOERQIXING CHA, COOLING NATURE) [Concomitant]
  2. ZENTEL (ALBENDAZOLE) TABLET [Suspect]
     Active Substance: ALBENDAZOLE
     Dosage: 2 DOSAGE UNITS
     Route: 048
     Dates: start: 2013
  3. ZENTEL (ALBENDAZOLE) TABLET [Suspect]
     Active Substance: ALBENDAZOLE
     Dosage: 2 DOSAGE UNITS
     Route: 048
     Dates: start: 20140801
  4. ZENTEL (ALBENDAZOLE) TABLET [Suspect]
     Active Substance: ALBENDAZOLE
     Dosage: 2 DOSAGE UNITS
     Route: 048
     Dates: start: 20141117

REACTIONS (5)
  - Bruxism [None]
  - Tremor [None]
  - Seizure [None]
  - Peripheral coldness [None]
  - Vomiting [None]

NARRATIVE: CASE EVENT DATE: 20140802
